FAERS Safety Report 12269048 (Version 3)
Quarter: 2016Q2

REPORT INFORMATION
  Report Type: Spontaneous
  Country: US (occurrence: US)
  Receive Date: 20160414
  Receipt Date: 20160518
  Transmission Date: 20160815
  Serious: No
  Sender: FDA-Public Use
  Company Number: US-BAYER-2016-071003

PATIENT
  Sex: Female
  Weight: 72.56 kg

DRUGS (3)
  1. CLARITIN [Suspect]
     Active Substance: LORATADINE
     Indication: SEASONAL ALLERGY
     Dosage: 1 DF, PRN
     Route: 048
     Dates: start: 201602
  2. ADVIL [Concomitant]
     Active Substance: IBUPROFEN
     Dosage: UNK
  3. CHLOR-TRIMETON [Suspect]
     Active Substance: CHLORPHENIRAMINE MALEATE
     Dosage: UNK

REACTIONS (6)
  - Disturbance in attention [Recovered/Resolved]
  - Disorientation [Recovered/Resolved]
  - No adverse event [None]
  - Wrong technique in product usage process [None]
  - Poor quality sleep [Recovered/Resolved]
  - Product use issue [None]

NARRATIVE: CASE EVENT DATE: 201602
